FAERS Safety Report 6257770-X (Version None)
Quarter: 2009Q3

REPORT INFORMATION
  Report Type: 
  Country: None (occurrence: None)
  Receive Date: 20090706
  Receipt Date: 20090622
  Transmission Date: 20100115
  Serious: Yes (Hospitalization, Other)
  Sender: FDA-Public Use
  Company Number: US-ROCHE-634091

PATIENT
  Sex: Male
  Weight: 68 kg

DRUGS (7)
  1. PEGASYS [Suspect]
     Indication: HEPATITIS C
     Dosage: FORM: PRE FILLED SYRINGE
     Route: 058
     Dates: start: 20090505, end: 20090505
  2. RIBAVIRIN [Suspect]
     Indication: HEPATITIS C
     Dosage: RIBAVIRIN 200 MG
     Route: 048
     Dates: start: 20090505, end: 20090505
  3. OXYCONTIN [Concomitant]
     Route: 048
  4. KLONOPIN [Concomitant]
     Dosage: 3 TIMES A DAY FOR THE PAST YEAR, AS NEEDED
     Route: 048
  5. TRAZODONE HCL [Concomitant]
     Dosage: DOSE: 100, FREQUENCY: QHS
     Route: 048
  6. ENABLEX [Concomitant]
  7. LIDODERM [Concomitant]
     Dosage: DOSE: 1 DOSE FORM A DAY

REACTIONS (6)
  - HEPATIC ENCEPHALOPATHY [None]
  - LEUKOPENIA [None]
  - MUSCLE SPASMS [None]
  - PAIN [None]
  - PLATELET COUNT DECREASED [None]
  - PNEUMONIA [None]
